FAERS Safety Report 5217289-1 (Version None)
Quarter: 2007Q1

REPORT INFORMATION
  Report Type: 
  Country: None (occurrence: None)
  Receive Date: 20070124
  Receipt Date: 20051213
  Transmission Date: 20070707
  Serious: No
  Sender: FDA-Public Use
  Company Number: US-GLAXOSMITHKLINE-A0586304A

PATIENT
  Sex: Female

DRUGS (1)
  1. PAXIL CR [Suspect]
     Indication: DRUG USE FOR UNKNOWN INDICATION
     Dosage: 25MG UNKNOWN
     Route: 048
     Dates: start: 20050101

REACTIONS (4)
  - DEPRESSED MOOD [None]
  - HYPERPHAGIA [None]
  - MOOD ALTERED [None]
  - OBSESSIVE-COMPULSIVE DISORDER [None]
